FAERS Safety Report 4352092-6 (Version None)
Quarter: 2004Q2

REPORT INFORMATION
  Report Type: 
  Country: None (occurrence: None)
  Receive Date: 20040409
  Receipt Date: 20040224
  Transmission Date: 20050107
  Serious: No
  Sender: FDA-Public Use
  Company Number: PHEH2004US02376

PATIENT
  Age: 88 Year
  Sex: Male

DRUGS (1)
  1. ELIDEL [Suspect]
     Indication: ECZEMA
     Dosage: ONCE/SINGLE, TOPICAL
     Route: 061
     Dates: start: 20040224, end: 20040224

REACTIONS (2)
  - RASH PRURITIC [None]
  - SKIN BURNING SENSATION [None]
